FAERS Safety Report 6540316-6 (Version None)
Quarter: 2010Q1

REPORT INFORMATION
  Report Type: 
  Country: None (occurrence: None)
  Receive Date: 20100115
  Receipt Date: 20100108
  Transmission Date: 20100710
  Serious: Yes (Other)
  Sender: FDA-Public Use
  Company Number: BR-ABBOTT-10P-020-0618301-00

PATIENT
  Sex: Male
  Weight: 55 kg

DRUGS (3)
  1. DEPAKOTE ER [Suspect]
     Indication: CONVULSION
     Route: 048
  2. MELLARIL [Concomitant]
     Indication: ANXIETY
     Route: 048
  3. TRILEPTAL [Concomitant]
     Indication: CONVULSION
     Route: 048

REACTIONS (5)
  - ABDOMINAL PAIN UPPER [None]
  - CONVULSION [None]
  - GASTRITIS [None]
  - MEDICATION RESIDUE [None]
  - VOMITING [None]
